FAERS Safety Report 8231598-3 (Version None)
Quarter: 2012Q1

REPORT INFORMATION
  Report Type: 
  Country: None (occurrence: None)
  Receive Date: 20120323
  Receipt Date: 20120313
  Transmission Date: 20120608
  Serious: Yes (Other)
  Sender: FDA-Public Use
  Company Number: JP-ELI_LILLY_AND_COMPANY-JP201111000005

PATIENT
  Age: 65 Year
  Sex: Female

DRUGS (1)
  1. FORTEO [Suspect]
     Route: 058

REACTIONS (6)
  - INJECTION SITE HAEMATOMA [None]
  - BREAST CANCER [None]
  - WRONG TECHNIQUE IN DRUG USAGE PROCESS [None]
  - NAUSEA [None]
  - INJURY ASSOCIATED WITH DEVICE [None]
  - PALPITATIONS [None]
